FAERS Safety Report 11235887 (Version 5)
Quarter: 2015Q3

REPORT INFORMATION
  Report Type: Report from Study
  Country: US (occurrence: US)
  Receive Date: 20150702
  Receipt Date: 20150924
  Transmission Date: 20151125
  Serious: Yes (Other)
  Sender: FDA-Public Use
  Company Number: PHEH2015US012678

PATIENT
  Age: 29 Year
  Sex: Female
  Weight: 86.17 kg

DRUGS (7)
  1. GILENYA [Suspect]
     Active Substance: FINGOLIMOD HYDROCHLORIDE
     Dosage: 0.5 MG, QD
     Route: 048
     Dates: start: 20150717
  2. PRENATAL VITAMINS [Concomitant]
     Active Substance: VITAMINS
     Indication: PRODUCT USED FOR UNKNOWN INDICATION
     Route: 065
  3. VITAMIN B12 [Concomitant]
     Active Substance: CYANOCOBALAMIN
     Indication: PRODUCT USED FOR UNKNOWN INDICATION
     Route: 065
  4. D-3 [Concomitant]
     Active Substance: CHOLECALCIFEROL
     Indication: PRODUCT USED FOR UNKNOWN INDICATION
     Route: 065
  5. ZOLOFT [Suspect]
     Active Substance: SERTRALINE HYDROCHLORIDE
     Indication: POSTPARTUM DEPRESSION
  6. GILENYA [Suspect]
     Active Substance: FINGOLIMOD HYDROCHLORIDE
     Indication: MULTIPLE SCLEROSIS
     Dosage: 0.5 MG, QD
     Route: 048
     Dates: start: 20130326
  7. ZOLOFT [Suspect]
     Active Substance: SERTRALINE HYDROCHLORIDE
     Indication: MOOD SWINGS
     Dosage: 50 MG, QD
     Route: 048

REACTIONS (22)
  - Central nervous system lesion [Unknown]
  - Balance disorder [Recovering/Resolving]
  - Multiple sclerosis [Unknown]
  - Pollakiuria [Recovering/Resolving]
  - Stress [Unknown]
  - Normal newborn [Unknown]
  - Hormone level abnormal [Unknown]
  - Prolonged labour [Unknown]
  - Emotional disorder [Recovering/Resolving]
  - Maternal exposure before pregnancy [Unknown]
  - Multiple sclerosis relapse [Unknown]
  - Paraesthesia [Recovered/Resolved]
  - Decreased vibratory sense [Recovering/Resolving]
  - Postpartum depression [Recovering/Resolving]
  - Mood swings [Recovering/Resolving]
  - Vertigo [Recovered/Resolved]
  - Anxiety [Recovering/Resolving]
  - Attention deficit/hyperactivity disorder [Recovering/Resolving]
  - Insomnia [Recovering/Resolving]
  - Migraine [Recovering/Resolving]
  - Headache [Recovering/Resolving]
  - Headache [Recovered/Resolved]

NARRATIVE: CASE EVENT DATE: 20150311
